FAERS Safety Report 20095242 (Version 1)
Quarter: 2021Q4

REPORT INFORMATION
  Report Type: Spontaneous
  Country: LV (occurrence: LV)
  Receive Date: 20211122
  Receipt Date: 20211122
  Transmission Date: 20220303
  Serious: Yes (Other)
  Sender: FDA-Public Use
  Company Number: LV-VIIV HEALTHCARE LIMITED-LV2021EME234912

PATIENT
  Sex: Female

DRUGS (4)
  1. ABACAVIR SULFATE\LAMIVUDINE [Suspect]
     Active Substance: ABACAVIR SULFATE\LAMIVUDINE
     Indication: HIV infection CDC category A
     Dosage: UNK
     Dates: start: 2015
  2. ABACAVIR SULFATE\LAMIVUDINE [Suspect]
     Active Substance: ABACAVIR SULFATE\LAMIVUDINE
     Dosage: UNK
     Dates: start: 2017, end: 2017
  3. EFAVIRENZ [Suspect]
     Active Substance: EFAVIRENZ
     Indication: HIV infection CDC category A
     Dosage: UNK
     Dates: start: 2015
  4. EFAVIRENZ [Suspect]
     Active Substance: EFAVIRENZ
     Dosage: UNK
     Dates: start: 2017, end: 2017

REACTIONS (6)
  - Thrombocytopenia [Unknown]
  - Pulmonary tuberculosis [Unknown]
  - Nausea [Unknown]
  - Dizziness [Unknown]
  - Viral load abnormal [Recovered/Resolved]
  - Treatment noncompliance [Unknown]

NARRATIVE: CASE EVENT DATE: 20170101
